FAERS Safety Report 11110229 (Version 2)
Quarter: 2015Q2

REPORT INFORMATION
  Report Type: Report from Study
  Country: US (occurrence: US)
  Receive Date: 20150513
  Receipt Date: 20150520
  Transmission Date: 20150821
  Serious: Yes (Life-Threatening, Hospitalization)
  Sender: FDA-Public Use
  Company Number: PHHO2013US000670

PATIENT
  Age: 80 Year
  Sex: Male

DRUGS (5)
  1. BICALUTAMIDE. [Suspect]
     Active Substance: BICALUTAMIDE
     Indication: PROSTATE CANCER
     Dosage: 50 MG, QD
     Route: 048
     Dates: start: 20121218, end: 20130102
  2. FARYDAK [Suspect]
     Active Substance: PANOBINOSTAT
     Indication: PROSTATE CANCER
     Dosage: 20 MG, (3X WEEK)
     Route: 048
     Dates: start: 20121218, end: 20121229
  3. SYNTHROID [Concomitant]
     Active Substance: LEVOTHYROXINE SODIUM
     Indication: PRODUCT USED FOR UNKNOWN INDICATION
     Dosage: 150 MCG, 5 TIMES A WEEK
     Route: 065
  4. VICODIN [Concomitant]
     Active Substance: ACETAMINOPHEN\HYDROCODONE BITARTRATE
     Indication: PRODUCT USED FOR UNKNOWN INDICATION
     Dosage: 1 DF, PRN (5/500 MG, 0.5 TABLET)
     Route: 065
  5. MELATONINE ISOTEC [Concomitant]
     Indication: PRODUCT USED FOR UNKNOWN INDICATION
     Dosage: PRN
     Route: 065

REACTIONS (3)
  - Dehydration [Recovered/Resolved]
  - Pleural effusion [Not Recovered/Not Resolved]
  - Pneumonia viral [Unknown]

NARRATIVE: CASE EVENT DATE: 20130104
